FAERS Safety Report 19050413 (Version 1)
Quarter: 2021Q1

REPORT INFORMATION
  Report Type: Spontaneous
  Country: US (occurrence: US)
  Receive Date: 20210323
  Receipt Date: 20210323
  Transmission Date: 20210420
  Serious: Yes (Hospitalization, Other)
  Sender: FDA-Public Use
  Company Number: None

PATIENT
  Age: 47 Year
  Sex: Female

DRUGS (10)
  1. DULOXETINE. [Concomitant]
     Active Substance: DULOXETINE
  2. HYDROXYZ HCL [Concomitant]
     Active Substance: HYDROXYZINE HYDROCHLORIDE
  3. PROCHLORPER [Concomitant]
  4. DOXYCYCL HYC [Concomitant]
  5. BOTOX [Suspect]
     Active Substance: ONABOTULINUMTOXINA
     Indication: MIGRAINE
     Dosage: ?          OTHER FREQUENCY:EVERY 3 MONTHS;?
     Route: 030
     Dates: start: 20180502
  6. CEPHALEXIN. [Concomitant]
     Active Substance: CEPHALEXIN
  7. METHYLPRED [Concomitant]
     Active Substance: METHYLPREDNISOLONE
  8. ALPRAZOLAM. [Concomitant]
     Active Substance: ALPRAZOLAM
  9. FLUCONAZOLE. [Concomitant]
     Active Substance: FLUCONAZOLE
  10. DIAZEPAM. [Concomitant]
     Active Substance: DIAZEPAM

REACTIONS (2)
  - Brain operation [None]
  - Infection [None]

NARRATIVE: CASE EVENT DATE: 20201209
